FAERS Safety Report 5464959-6 (Version None)
Quarter: 2007Q3

REPORT INFORMATION
  Report Type: 
  Country: None (occurrence: None)
  Receive Date: 20070921
  Receipt Date: 20070910
  Transmission Date: 20080115
  Serious: Yes (Other)
  Sender: FDA-Public Use
  Company Number: US-PFIZER INC-2007077345

PATIENT
  Sex: Female
  Weight: 61.2 kg

DRUGS (2)
  1. XALATAN [Suspect]
     Indication: INTRAOCULAR PRESSURE INCREASED
  2. XAL-EASE [Suspect]

REACTIONS (4)
  - BLINDNESS [None]
  - DEVICE MISUSE [None]
  - EYE IRRITATION [None]
  - EYE PRURITUS [None]
